FAERS Safety Report 10452647 (Version 1)
Quarter: 2014Q3

REPORT INFORMATION
  Report Type: Spontaneous
  Country: US (occurrence: US)
  Receive Date: 20140915
  Receipt Date: 20140915
  Transmission Date: 20150326
  Serious: Yes (Other)
  Sender: FDA-Public Use
  Company Number: US-AMGEN-USASP2014069337

PATIENT
  Sex: Female

DRUGS (1)
  1. PROLIA [Suspect]
     Active Substance: DENOSUMAB
     Indication: PRODUCT USED FOR UNKNOWN INDICATION
     Route: 065

REACTIONS (7)
  - Stomatitis [Unknown]
  - Blood urine present [Unknown]
  - Influenza like illness [Unknown]
  - Haematochezia [Unknown]
  - Nausea [Unknown]
  - Bone pain [Unknown]
  - Pain [Unknown]
